FAERS Safety Report 14679333 (Version 1)
Quarter: 2018Q1

REPORT INFORMATION
  Report Type: Spontaneous
  Country: US (occurrence: US)
  Receive Date: 20180326
  Receipt Date: 20180326
  Transmission Date: 20180509
  Serious: No
  Sender: FDA-Public Use
  Company Number: US-PFIZER INC-2018123187

PATIENT
  Age: 43 Year
  Sex: Female

DRUGS (1)
  1. IBRANCE [Suspect]
     Active Substance: PALBOCICLIB
     Indication: BREAST CANCER
     Dosage: 125 MG, CYCLIC (EVERY DAY FOR 21 DAYS ON AND THEN 7 DAYS OFF)
     Route: 048
     Dates: start: 20180201

REACTIONS (7)
  - Nasal congestion [Recovering/Resolving]
  - Rash [Recovered/Resolved]
  - Dyspepsia [Recovering/Resolving]
  - Upper respiratory tract infection [Recovering/Resolving]
  - Rhinorrhoea [Recovering/Resolving]
  - Alopecia [Unknown]
  - Drug hypersensitivity [Recovering/Resolving]

NARRATIVE: CASE EVENT DATE: 2018
